FAERS Safety Report 9296362 (Version 3)
Quarter: 2013Q3

REPORT INFORMATION
  Report Type: Spontaneous
  Country: US (occurrence: US)
  Receive Date: 20130517
  Receipt Date: 20130723
  Transmission Date: 20140515
  Serious: Yes (Death, Hospitalization)
  Sender: FDA-Public Use
  Company Number: US-CELGENEUS-163-21880-13051543

PATIENT
  Age: 65 Year
  Sex: Male
  Weight: 74.7 kg

DRUGS (1)
  1. REVLIMID [Suspect]
     Indication: PLASMA CELL MYELOMA
     Dosage: 25 MILLIGRAM
     Route: 048
     Dates: start: 20130204, end: 201305

REACTIONS (4)
  - Plasma cell myeloma [Fatal]
  - Paraparesis [Recovering/Resolving]
  - Spinal cord compression [Recovering/Resolving]
  - Plasma cell myeloma [Recovering/Resolving]
